FAERS Safety Report 17723825 (Version 6)
Quarter: 2022Q2

REPORT INFORMATION
  Report Type: Spontaneous
  Country: US (occurrence: US)
  Receive Date: 20200429
  Receipt Date: 20220417
  Transmission Date: 20220721
  Serious: No
  Sender: FDA-Public Use
  Company Number: US-SA-2020SA110390

PATIENT
  Age: 62 Year
  Sex: Male

DRUGS (2)
  1. CAPRELSA [Suspect]
     Active Substance: VANDETANIB
     Indication: Thyroid cancer
     Dosage: 200 MG, QD
     Route: 048
     Dates: start: 20200319
  2. CAPRELSA [Suspect]
     Active Substance: VANDETANIB
     Dosage: 300 MG, QD
     Route: 048
     Dates: start: 20200323

REACTIONS (7)
  - Peripheral swelling [Unknown]
  - Hepatic mass [Unknown]
  - Throat irritation [Unknown]
  - Hypertension [Unknown]
  - Acne [Unknown]
  - Product dose omission issue [Unknown]
  - Unevaluable event [Unknown]
